FAERS Safety Report 24769292 (Version 1)
Quarter: 2024Q4

REPORT INFORMATION
  Report Type: Spontaneous
  Country: US (occurrence: US)
  Receive Date: 20241224
  Receipt Date: 20241224
  Transmission Date: 20250115
  Serious: Yes (Other)
  Sender: INTRA-CELLULAR THERAPIES
  Company Number: US-INTRA-CELLULAR THERAPIES, INC.-2024ICT02042

PATIENT
  Age: 61 Year
  Sex: Female
  Weight: 55.782 kg

DRUGS (5)
  1. CAPLYTA [Suspect]
     Active Substance: LUMATEPERONE
     Indication: Depression
     Dosage: 42 MG, 1X/DAY
     Route: 048
     Dates: start: 20240111, end: 20241119
  2. CAPLYTA [Suspect]
     Active Substance: LUMATEPERONE
     Dosage: 42 MG, EVERY 48 HOURS (CONTENTS OF 42 MG CAPSULE DISSOLVED IN WATER AND DRINK 1/2 CONTENTS DAILY)
     Route: 048
     Dates: start: 20241120
  3. DIFLUCAN [Concomitant]
     Active Substance: FLUCONAZOLE
  4. CYMBALTA [Concomitant]
     Active Substance: DULOXETINE HYDROCHLORIDE
  5. PRAZOSIN [Concomitant]
     Active Substance: PRAZOSIN

REACTIONS (20)
  - Suicidal ideation [Unknown]
  - Suicidal behaviour [Unknown]
  - Diabetes mellitus [Not Recovered/Not Resolved]
  - Fall [Recovered/Resolved]
  - Thirst [Unknown]
  - Weight decreased [Not Recovered/Not Resolved]
  - Dry throat [Unknown]
  - Asthenia [Unknown]
  - Confusional state [Unknown]
  - Disorientation [Unknown]
  - Hypotension [Unknown]
  - Back pain [Unknown]
  - Cyst [Unknown]
  - Thinking abnormal [Unknown]
  - Dysphagia [Unknown]
  - Fatigue [Unknown]
  - Dry mouth [Unknown]
  - Nausea [Unknown]
  - Intentional product misuse [Not Recovered/Not Resolved]
  - Off label use [Not Recovered/Not Resolved]

NARRATIVE: CASE EVENT DATE: 20240101
